FAERS Safety Report 7441497-2 (Version None)
Quarter: 2011Q2

REPORT INFORMATION
  Report Type: 
  Country: None (occurrence: None)
  Receive Date: 20110419
  Receipt Date: 20110408
  Transmission Date: 20111010
  Serious: Yes (Hospitalization, Disabling)
  Sender: FDA-Public Use
  Company Number: 2011AP000700

PATIENT
  Age: 85 Year
  Sex: Female

DRUGS (16)
  1. ESOMEPRAZOLE [Concomitant]
  2. CODEINE SULFATE [Concomitant]
  3. FLUCONAZOLE [Concomitant]
  4. METOCLOPRAMIDE [Concomitant]
  5. NYSTATIN [Concomitant]
  6. METRONIDAZOLE [Suspect]
     Indication: LOWER RESPIRATORY TRACT INFECTION
     Dosage: 400 MG, PO
     Route: 048
     Dates: start: 20110323, end: 20110324
  7. ALUMINUM HYDROXIDE GEL [Concomitant]
  8. CALCIUM CARBONATE [Concomitant]
  9. POTASSIUM BICARBONATE [Concomitant]
  10. LISINOPRIL [Concomitant]
  11. ACETAMINOPHEN [Concomitant]
  12. SODIUM ALGINATE [Concomitant]
  13. SODIUM BICARBONATE [Concomitant]
  14. AMITRIPTYLINE HCL [Concomitant]
  15. CYCLIZINE [Concomitant]
  16. CLARITHROMYCIN [Suspect]
     Indication: LOWER RESPIRATORY TRACT INFECTION
     Dosage: 500 MG, PO
     Route: 048
     Dates: start: 20110323, end: 20110324

REACTIONS (1)
  - DELIRIUM [None]
